FAERS Safety Report 16632808 (Version 3)
Quarter: 2019Q4

REPORT INFORMATION
  Report Type: Spontaneous
  Country: GB (occurrence: GB)
  Receive Date: 20190725
  Receipt Date: 20191021
  Transmission Date: 20200122
  Serious: Yes (Hospitalization, Other)
  Sender: FDA-Public Use
  Company Number: GB-MYLANLABS-2019M1068324

PATIENT
  Age: 15 Year
  Sex: Female

DRUGS (5)
  1. FLUCLOXACILLIN [Concomitant]
     Active Substance: FLUCLOXACILLIN
     Dosage: UNK, (TAKEN 2 WEEKS PRIOR TO ISOTRETINOIN THERAPY)
  2. CLINDAMYCIN. [Concomitant]
     Active Substance: CLINDAMYCIN
     Dosage: UNK
     Route: 061
     Dates: end: 20190107
  3. ISOTRETINOIN. [Suspect]
     Active Substance: ISOTRETINOIN
     Indication: ACNE
     Dosage: 20 MG ON ALTERNATE DAYS
     Route: 048
     Dates: start: 20181223
  4. YASMIN [Concomitant]
     Active Substance: DROSPIRENONE\ETHINYL ESTRADIOL
     Dosage: UNK
     Route: 048
     Dates: start: 201811
  5. ISOTRETINOIN. [Suspect]
     Active Substance: ISOTRETINOIN
     Dosage: 20 MG ON ALTERNATE DAYS
     Route: 048
     Dates: start: 20181223

REACTIONS (7)
  - Vomiting [Recovered/Resolved]
  - Malaise [Recovered/Resolved]
  - Lethargy [Unknown]
  - Headache [Recovered/Resolved]
  - Type 1 diabetes mellitus [Unknown]
  - Chapped lips [Unknown]
  - Dysgeusia [Unknown]
